FAERS Safety Report 14816989 (Version 1)
Quarter: 2018Q2

REPORT INFORMATION
  Report Type: Spontaneous
  Country: DE (occurrence: DE)
  Receive Date: 20180426
  Receipt Date: 20180426
  Transmission Date: 20180711
  Serious: Yes (Hospitalization, Other)
  Sender: FDA-Public Use
  Company Number: DE-B.I. PHARMACEUTICALS,INC./RIDGEFIELD-2018-BI-021638

PATIENT
  Age: 36 Year
  Sex: Female

DRUGS (30)
  1. DOCETAXEL. [Concomitant]
     Active Substance: DOCETAXEL
     Indication: METASTASES TO LYMPH NODES
  2. GEMCITABINE [Concomitant]
     Active Substance: GEMCITABINE\GEMCITABINE HYDROCHLORIDE
     Indication: LUNG ADENOCARCINOMA
     Route: 065
     Dates: start: 201706, end: 201708
  3. GEMCITABINE [Concomitant]
     Active Substance: GEMCITABINE\GEMCITABINE HYDROCHLORIDE
     Indication: METASTATIC NEOPLASM
  4. GEMCITABINE [Concomitant]
     Active Substance: GEMCITABINE\GEMCITABINE HYDROCHLORIDE
     Indication: LUNG CARCINOMA CELL TYPE UNSPECIFIED STAGE IV
  5. VARGATEF [Suspect]
     Active Substance: NINTEDANIB
     Indication: LUNG ADENOCARCINOMA
     Route: 065
     Dates: start: 201610, end: 201701
  6. VARGATEF [Suspect]
     Active Substance: NINTEDANIB
     Indication: METASTATIC NEOPLASM
  7. DOCETAXEL. [Concomitant]
     Active Substance: DOCETAXEL
     Indication: LUNG ADENOCARCINOMA
     Route: 065
     Dates: start: 201610, end: 201701
  8. PEMBROLIZUMAB. [Concomitant]
     Active Substance: PEMBROLIZUMAB
     Indication: LUNG ADENOCARCINOMA
     Route: 065
     Dates: start: 201704, end: 201706
  9. GEMCITABINE [Concomitant]
     Active Substance: GEMCITABINE\GEMCITABINE HYDROCHLORIDE
     Indication: PULMONARY MASS
     Route: 065
     Dates: start: 201709, end: 201712
  10. PEMBROLIZUMAB. [Concomitant]
     Active Substance: PEMBROLIZUMAB
     Indication: METASTATIC NEOPLASM
  11. CISPLATIN. [Concomitant]
     Active Substance: CISPLATIN
     Indication: PULMONARY MASS
  12. DOCETAXEL. [Concomitant]
     Active Substance: DOCETAXEL
     Indication: PULMONARY MASS
  13. DOCETAXEL. [Concomitant]
     Active Substance: DOCETAXEL
     Indication: LUNG CARCINOMA CELL TYPE UNSPECIFIED STAGE IV
  14. PEMBROLIZUMAB. [Concomitant]
     Active Substance: PEMBROLIZUMAB
     Indication: PULMONARY MASS
  15. GEMCITABINE [Concomitant]
     Active Substance: GEMCITABINE\GEMCITABINE HYDROCHLORIDE
     Indication: METASTASES TO LYMPH NODES
  16. CISPLATIN. [Concomitant]
     Active Substance: CISPLATIN
     Indication: LUNG ADENOCARCINOMA
     Route: 065
     Dates: start: 201706, end: 201708
  17. CISPLATIN. [Concomitant]
     Active Substance: CISPLATIN
     Indication: METASTASES TO LYMPH NODES
  18. CISPLATIN. [Concomitant]
     Active Substance: CISPLATIN
     Indication: METASTATIC NEOPLASM
  19. OSIMERTINIB. [Concomitant]
     Active Substance: OSIMERTINIB
     Indication: PULMONARY MASS
  20. OSIMERTINIB. [Concomitant]
     Active Substance: OSIMERTINIB
     Indication: METASTATIC NEOPLASM
  21. OSIMERTINIB. [Concomitant]
     Active Substance: OSIMERTINIB
     Indication: LUNG CARCINOMA CELL TYPE UNSPECIFIED STAGE IV
  22. VARGATEF [Suspect]
     Active Substance: NINTEDANIB
     Indication: PULMONARY MASS
     Route: 065
     Dates: start: 201701
  23. CISPLATIN. [Concomitant]
     Active Substance: CISPLATIN
     Indication: LUNG CARCINOMA CELL TYPE UNSPECIFIED STAGE IV
  24. PEMBROLIZUMAB. [Concomitant]
     Active Substance: PEMBROLIZUMAB
     Indication: METASTASES TO LYMPH NODES
  25. OSIMERTINIB. [Concomitant]
     Active Substance: OSIMERTINIB
     Indication: LUNG ADENOCARCINOMA
     Route: 065
     Dates: start: 201802
  26. VARGATEF [Suspect]
     Active Substance: NINTEDANIB
     Indication: METASTASES TO LYMPH NODES
  27. VARGATEF [Suspect]
     Active Substance: NINTEDANIB
     Indication: LUNG CARCINOMA CELL TYPE UNSPECIFIED STAGE IV
  28. DOCETAXEL. [Concomitant]
     Active Substance: DOCETAXEL
     Indication: METASTATIC NEOPLASM
  29. PEMBROLIZUMAB. [Concomitant]
     Active Substance: PEMBROLIZUMAB
     Indication: LUNG CARCINOMA CELL TYPE UNSPECIFIED STAGE IV
  30. OSIMERTINIB. [Concomitant]
     Active Substance: OSIMERTINIB
     Indication: METASTASES TO LYMPH NODES

REACTIONS (16)
  - Acute kidney injury [Unknown]
  - Blood lactate dehydrogenase increased [Unknown]
  - Aspartate aminotransferase increased [Unknown]
  - Metastases to peritoneum [Unknown]
  - Jaundice [Unknown]
  - Ascites [Unknown]
  - Scleral disorder [Unknown]
  - Hypoacusis [Unknown]
  - General physical health deterioration [Unknown]
  - Blood creatinine increased [Unknown]
  - Dyspnoea exertional [Unknown]
  - Lymphadenopathy [Unknown]
  - Oedema peripheral [Unknown]
  - Hepatic lesion [Unknown]
  - Drug-induced liver injury [Unknown]
  - Blood bilirubin increased [Unknown]

NARRATIVE: CASE EVENT DATE: 201704
